FAERS Safety Report 12433456 (Version 2)
Quarter: 2016Q2

REPORT INFORMATION
  Report Type: Report from Study
  Country: FR (occurrence: FR)
  Receive Date: 20160603
  Receipt Date: 20160604
  Transmission Date: 20160815
  Serious: Yes (Death, Hospitalization)
  Sender: FDA-Public Use
  Company Number: FR-CELGENEUS-FRA-2015095067

PATIENT
  Age: 77 Year
  Sex: Male
  Weight: 60 kg

DRUGS (12)
  1. XATRAL LP [Concomitant]
     Active Substance: ALFUZOSIN
     Indication: PRODUCT USED FOR UNKNOWN INDICATION
     Dosage: 10 MILLIGRAM
     Route: 065
  2. VALACICLOVIR [Concomitant]
     Active Substance: VALACYCLOVIR HYDROCHLORIDE
     Indication: PRODUCT USED FOR UNKNOWN INDICATION
     Dosage: 1000 MILLIGRAM
     Route: 065
  3. DUPHALAC [Concomitant]
     Active Substance: LACTULOSE
     Indication: PRODUCT USED FOR UNKNOWN INDICATION
     Route: 065
  4. TOPALGIC LP [Concomitant]
     Active Substance: TRAMADOL
     Route: 065
  5. LANTUS [Concomitant]
     Active Substance: INSULIN GLARGINE
     Indication: PRODUCT USED FOR UNKNOWN INDICATION
     Route: 065
  6. NOVORAPID RESCUE PROTOCOL [Concomitant]
     Indication: PRODUCT USED FOR UNKNOWN INDICATION
     Route: 065
  7. CLASTOBAN [Concomitant]
     Active Substance: CLODRONIC ACID
     Indication: PRODUCT USED FOR UNKNOWN INDICATION
     Dosage: 1600 MILLIGRAM
     Route: 065
  8. CC-5013 [Suspect]
     Active Substance: LENALIDOMIDE
     Route: 048
     Dates: start: 20150722, end: 20150811
  9. KARDEGIC [Concomitant]
     Active Substance: ASPIRIN LYSINE
     Indication: PRODUCT USED FOR UNKNOWN INDICATION
     Dosage: 75 MILLIGRAM
     Route: 065
  10. TOPALGIC LP [Concomitant]
     Active Substance: TRAMADOL
     Indication: PAIN
     Route: 065
  11. TOPALGIC LP [Concomitant]
     Active Substance: TRAMADOL
     Dosage: 10 MILLIGRAM
     Route: 065
  12. CC-5013 [Suspect]
     Active Substance: LENALIDOMIDE
     Indication: PLASMA CELL MYELOMA
     Route: 048
     Dates: start: 20140924, end: 20141014

REACTIONS (2)
  - Prostatitis [Recovered/Resolved]
  - Pneumonitis [Fatal]

NARRATIVE: CASE EVENT DATE: 20150811
